FAERS Safety Report 9210692 (Version 2)
Quarter: 2013Q2

REPORT INFORMATION
  Report Type: Spontaneous
  Country: US (occurrence: US)
  Receive Date: 20130404
  Receipt Date: 20130424
  Transmission Date: 20140414
  Serious: Yes (Hospitalization)
  Sender: FDA-Public Use
  Company Number: US-VIIV HEALTHCARE LIMITED-A1017683A

PATIENT
  Age: 54 Year
  Sex: Male

DRUGS (18)
  1. LEXIVA [Suspect]
     Indication: HIV INFECTION
     Dosage: 1400MG TWICE PER DAY
     Route: 048
  2. HUMULIN R [Suspect]
     Indication: PRODUCT USED FOR UNKNOWN INDICATION
     Route: 065
  3. HIV ANTIVIRAL AGENTS UNSPECIFIED [Suspect]
     Indication: HIV INFECTION
     Route: 065
  4. ISENTRESS [Concomitant]
  5. METOPROLOL XL [Concomitant]
  6. LISINOPRIL [Concomitant]
  7. VALTREX [Concomitant]
  8. ASPIRIN [Concomitant]
  9. OXYCODONE [Concomitant]
  10. TRAMADOL [Concomitant]
  11. GABAPENTIN [Concomitant]
  12. NEXIUM [Concomitant]
  13. LOVAZA [Concomitant]
  14. DIAZEPAM [Concomitant]
  15. GEMFIBROZIL [Concomitant]
  16. LOMOTIL [Concomitant]
  17. FIBER [Concomitant]
  18. MULTIVITAMIN [Concomitant]

REACTIONS (5)
  - Pancreatitis [Recovered/Resolved]
  - Diabetes mellitus [Not Recovered/Not Resolved]
  - Water intoxication [Recovered/Resolved]
  - Lipoma [Unknown]
  - Weight increased [Unknown]
